FAERS Safety Report 4900696-1 (Version None)
Quarter: 2006Q1

REPORT INFORMATION
  Report Type: 
  Country: None (occurrence: None)
  Receive Date: 20060201
  Receipt Date: 20060123
  Transmission Date: 20060701
  Serious: Yes (Other)
  Sender: FDA-Public Use
  Company Number: 2006AD000009

PATIENT
  Sex: Female

DRUGS (1)
  1. KEFLEX [Suspect]

REACTIONS (1)
  - ANAPHYLACTIC SHOCK [None]
